FAERS Safety Report 11257773 (Version 2)
Quarter: 2015Q3

REPORT INFORMATION
  Report Type: Report from Study
  Country: US (occurrence: US)
  Receive Date: 20150710
  Receipt Date: 20150805
  Transmission Date: 20151125
  Serious: Yes (Other)
  Sender: FDA-Public Use
  Company Number: US-ABBVIE-15P-163-1388676-00

PATIENT
  Age: 26 Year
  Sex: Female
  Weight: 56.75 kg

DRUGS (2)
  1. AZATHIOPRINE. [Concomitant]
     Active Substance: AZATHIOPRINE
     Indication: PRODUCT USED FOR UNKNOWN INDICATION
  2. HUMIRA [Suspect]
     Active Substance: ADALIMUMAB
     Indication: CROHN^S DISEASE
     Route: 065
     Dates: start: 20140805

REACTIONS (2)
  - Colonic abscess [Recovering/Resolving]
  - Colonic fistula [Recovering/Resolving]

NARRATIVE: CASE EVENT DATE: 20150611
